FAERS Safety Report 9957887 (Version 1)
Quarter: 2014Q1

REPORT INFORMATION
  Report Type: Report from Study
  Country: US (occurrence: US)
  Receive Date: 20140304
  Receipt Date: 20140304
  Transmission Date: 20141002
  Serious: No
  Sender: FDA-Public Use
  Company Number: US-ABBVIE-13P-163-1094249-00

PATIENT
  Age: 22 Year
  Sex: Female

DRUGS (11)
  1. HUMIRA [Suspect]
     Indication: COLITIS ULCERATIVE
     Dosage: LOADING DOSE
     Dates: start: 20130508
  2. IMURAN [Concomitant]
     Indication: PRODUCT USED FOR UNKNOWN INDICATION
     Dosage: 100 MG DAILY
  3. BUSPIRONE [Concomitant]
     Indication: ANXIETY
     Dosage: 15 MG DAILY
  4. CITALOPRAM [Concomitant]
     Indication: DEPRESSION
     Dosage: 40 MG DAILY
  5. ERGOCALCIFEROL [Concomitant]
     Indication: PRODUCT USED FOR UNKNOWN INDICATION
  6. VITAMIN D [Concomitant]
     Indication: VITAMIN D DEFICIENCY
  7. IMPLANON [Concomitant]
     Indication: CONTRACEPTION
     Dosage: JUST UNDER SKIN
  8. NU IRON [Concomitant]
     Indication: PRODUCT USED FOR UNKNOWN INDICATION
  9. IRON POLYSACCHARIDE COMPLEX [Concomitant]
     Indication: PRODUCT USED FOR UNKNOWN INDICATION
  10. LORATADINE [Concomitant]
     Indication: HYPERSENSITIVITY
     Dosage: 10 MG DAILY
  11. LIALDA MESALAMINE [Concomitant]
     Indication: PRODUCT USED FOR UNKNOWN INDICATION
     Dosage: 4.8 GMS DAILY

REACTIONS (2)
  - Injection site pain [Recovering/Resolving]
  - Injection site bruising [Not Recovered/Not Resolved]
